FAERS Safety Report 21311212 (Version 1)
Quarter: 2022Q3

REPORT INFORMATION
  Report Type: Spontaneous
  Country: US (occurrence: None)
  Receive Date: 20220909
  Receipt Date: 20220909
  Transmission Date: 20221026
  Serious: No
  Sender: FDA-Public Use
  Company Number: US-ARIS GLOBAL-202202-0229

PATIENT
  Age: 56 Year
  Sex: Female

DRUGS (1)
  1. OXERVATE [Suspect]
     Active Substance: CENEGERMIN-BKBJ
     Indication: Neurotrophic keratopathy
     Route: 047
     Dates: start: 20220202

REACTIONS (10)
  - Periorbital pain [Unknown]
  - Periorbital swelling [Unknown]
  - Eye pain [Unknown]
  - Eye swelling [Unknown]
  - Photophobia [Unknown]
  - Headache [Unknown]
  - Off label use [Unknown]
  - Product administration error [Unknown]
  - Drug hypersensitivity [Unknown]
  - Eye irritation [Unknown]

NARRATIVE: CASE EVENT DATE: 20220204
